FAERS Safety Report 23491508 (Version 2)
Quarter: 2024Q1

REPORT INFORMATION
  Report Type: Report from Study
  Country: BR (occurrence: BR)
  Receive Date: 20240207
  Receipt Date: 20240209
  Transmission Date: 20240409
  Serious: Yes (Other)
  Sender: FDA-Public Use
  Company Number: BR-NOVOPROD-1169813

PATIENT
  Age: 56 Year
  Sex: Female
  Weight: 74.6 kg

DRUGS (4)
  1. SAXENDA [Suspect]
     Active Substance: LIRAGLUTIDE
     Indication: Weight control
     Dosage: 0.6 MG, QD
     Dates: start: 20231123
  2. SAXENDA [Suspect]
     Active Substance: LIRAGLUTIDE
     Indication: Cardiac disorder
  3. SAXENDA [Suspect]
     Active Substance: LIRAGLUTIDE
     Indication: Hypertension
     Dosage: 1.8 MG, QD
     Dates: start: 20231208
  4. SAXENDA [Suspect]
     Active Substance: LIRAGLUTIDE
     Indication: Type 2 diabetes mellitus
     Dosage: 1.2 MG, QD
     Dates: start: 20231130

REACTIONS (8)
  - Myocardial infarction [Unknown]
  - Hyperglycaemia [Not Recovered/Not Resolved]
  - Weight increased [Not Recovered/Not Resolved]
  - Nausea [Recovered/Resolved]
  - Diarrhoea [Recovered/Resolved]
  - Drug ineffective [Not Recovered/Not Resolved]
  - Product quality issue [Unknown]
  - Blood pressure increased [Unknown]

NARRATIVE: CASE EVENT DATE: 20231208
